FAERS Safety Report 8047801-9 (Version None)
Quarter: 2012Q1

REPORT INFORMATION
  Report Type: 
  Country: None (occurrence: None)
  Receive Date: 20120116
  Receipt Date: 20120110
  Transmission Date: 20120608
  Serious: Yes (Other)
  Sender: FDA-Public Use
  Company Number: PHHY2012JP002383

PATIENT

DRUGS (2)
  1. TEGRETOL [Suspect]
     Dosage: 100 MG, DAILY
     Route: 048
  2. TEGRETOL [Suspect]
     Dosage: 50 MG, DAILY
     Route: 048

REACTIONS (1)
  - MONOPLEGIA [None]
